FAERS Safety Report 5279820-X (Version None)
Quarter: 2007Q1

REPORT INFORMATION
  Report Type: 
  Country: None (occurrence: None)
  Receive Date: 20061212
  Receipt Date: 20050601
  Transmission Date: 20070707
  Serious: No
  Sender: FDA-Public Use
  Company Number: 2005UW08427

PATIENT
  Age: 79 Year
  Sex: Female
  Weight: 72.574 kg

DRUGS (4)
  1. RHINOCORT AQUA [Suspect]
     Indication: HYPERSENSITIVITY
     Dosage: 64 UG QD IN
     Route: 055
     Dates: start: 20050201
  2. RHINOCORT AQUA [Suspect]
     Indication: HYPERSENSITIVITY
     Dosage: 128 UG BID IN
     Route: 055
     Dates: start: 20050501
  3. KLOR-CON [Concomitant]
  4. LASIX [Concomitant]

REACTIONS (1)
  - EPISTAXIS [None]
